FAERS Safety Report 7415103-7 (Version None)
Quarter: 2011Q2

REPORT INFORMATION
  Report Type: 
  Country: None (occurrence: None)
  Receive Date: 20110414
  Receipt Date: 20110401
  Transmission Date: 20111010
  Serious: No
  Sender: FDA-Public Use
  Company Number: PHHY2011TW27217

PATIENT
  Sex: Female

DRUGS (2)
  1. SUTENT [Suspect]
     Dosage: 3 DF, QD
     Dates: start: 20100809, end: 20101222
  2. TASIGNA [Suspect]
     Indication: GASTROINTESTINAL STROMAL TUMOUR
     Dosage: 800 MG, DAILY
     Route: 048
     Dates: start: 20101222

REACTIONS (4)
  - DYSGEUSIA [None]
  - DIARRHOEA [None]
  - NASOPHARYNGITIS [None]
  - FATIGUE [None]
